FAERS Safety Report 4555371-2 (Version None)
Quarter: 2005Q1

REPORT INFORMATION
  Report Type: 
  Country: None (occurrence: None)
  Receive Date: 20050118
  Receipt Date: 20050118
  Transmission Date: 20050727
  Serious: Yes (Hospitalization)
  Sender: FDA-Public Use
  Company Number: None

PATIENT
  Weight: 114.8 kg

DRUGS (2)
  1. TORADOL [Suspect]
     Dosage: 30MG  Q6H  PM INTRAVENOUS
     Route: 042
  2. IBUPROFEN [Concomitant]

REACTIONS (1)
  - RENAL FAILURE ACUTE [None]
